FAERS Safety Report 8976647 (Version 1)
Quarter: 2012Q4

REPORT INFORMATION
  Report Type: 
  Country: US (occurrence: US)
  Receive Date: 20121219
  Receipt Date: 20121219
  Transmission Date: 20130627
  Serious: No
  Sender: FDA-Public Use
  Company Number: US-AMGEN-USASP2012062085

PATIENT
  Age: 71 Year
  Sex: Female
  Weight: 64.4 kg

DRUGS (1)
  1. PROLIA [Suspect]
     Indication: OSTEOPOROSIS
     Dosage: 60 mg, q6mo
     Dates: start: 20101203

REACTIONS (4)
  - Pain of skin [Unknown]
  - Rash pruritic [Unknown]
  - Cellulitis [Unknown]
  - Erythema [Unknown]
